FAERS Safety Report 15131450 (Version 5)
Quarter: 2019Q2

REPORT INFORMATION
  Report Type: Spontaneous
  Country: US (occurrence: US)
  Receive Date: 20180711
  Receipt Date: 20190514
  Transmission Date: 20190711
  Serious: No
  Sender: FDA-Public Use
  Company Number: US-PFIZER INC-2016388807

PATIENT
  Age: 76 Year
  Sex: Female
  Weight: 81 kg

DRUGS (22)
  1. ASPIRIN EC [Concomitant]
     Active Substance: ASPIRIN
     Dosage: 325 MG, DAILY
     Route: 048
  2. CALCIUM+D [Concomitant]
     Active Substance: CALCIUM\VITAMIN D
     Dosage: 1 DF, DAILY ([CALCIUM PHOSPHATE: 600U/COLECALCIFEROL: 200U])
     Route: 048
  3. MIRALAX [Concomitant]
     Active Substance: POLYETHYLENE GLYCOL 3350
     Dosage: 1 DF, AS NEEDED (DAILY)
     Route: 048
  4. TRAMADOL. [Concomitant]
     Active Substance: TRAMADOL
     Indication: PAIN
     Dosage: 50 MG, AS NEEDED (1 TABLET EVERY SIX HOURS)
     Route: 048
     Dates: start: 20160720
  5. PROVENTIL HFA [Concomitant]
     Active Substance: ALBUTEROL SULFATE
     Dosage: 216 UG, AS NEEDED (108 (90 BASE) MCG/ACT AEROSOL SOLN, 2 PUFFS EVERY FOURS HOURS)
     Route: 055
     Dates: start: 20140826
  6. VITAMIN D3 [Concomitant]
     Active Substance: CHOLECALCIFEROL
     Dosage: 3000 IU, DAILY
     Route: 048
  7. CPAP [Concomitant]
     Active Substance: DEVICE
     Dosage: UNK, 1X/DAY (EVERY BEDTIME)
  8. VITAMIN B12 TR [Concomitant]
     Dosage: 1000 UG, DAILY
     Route: 048
     Dates: start: 201309
  9. ZOLPIDEM TARTRATE. [Concomitant]
     Active Substance: ZOLPIDEM TARTRATE
     Indication: SLEEP DISORDER
     Dosage: 5 MG, AS NEEDED (AT BEDTIME)
     Route: 048
     Dates: start: 20160720
  10. VENLAFAXINE HCL [Concomitant]
     Active Substance: VENLAFAXINE HYDROCHLORIDE
     Dosage: 100 MG, 3X/DAY (WITH FOOD)
     Route: 048
     Dates: start: 20160714
  11. LASIX [Concomitant]
     Active Substance: FUROSEMIDE
     Dosage: 10 MG, DAILY (20MG TABLET 1/2 TABLET)
     Route: 048
     Dates: start: 20140407
  12. VERAMYST [Concomitant]
     Active Substance: FLUTICASONE FUROATE
     Dosage: 110 UG, DAILY (SPRAY SUSPENSION, 2 SPRAYS EACH NOSTRIL DAILY)
     Route: 045
     Dates: start: 20121002
  13. ADVAIR HFA [Concomitant]
     Active Substance: FLUTICASONE PROPIONATE\SALMETEROL XINAFOATE
     Dosage: 1 DF, AS NEEDED (AEROSOL, [FLUTICASONE PROPIONATE: 115UG/SALMETEROL XINAFOATE: 21 UG])
     Route: 055
     Dates: start: 20121202
  14. LYRICA [Suspect]
     Active Substance: PREGABALIN
     Indication: NEUROPATHY PERIPHERAL
     Dosage: 50 MG, 3X/DAY
     Route: 048
     Dates: start: 2012
  15. AMITRIPTYLINE HCL [Concomitant]
     Active Substance: AMITRIPTYLINE
     Dosage: 100 MG, 1X/DAY (AT BEDTIME)
     Dates: start: 20160720
  16. CLONAZEPAM. [Concomitant]
     Active Substance: CLONAZEPAM
     Dosage: UNK, 3X/DAY (0.5 MG TABLET 1/2 TAB IN THE MORNING, 1 TAB AT NOON, 1.5 TABS AT BEDTIME)
     Route: 048
     Dates: start: 20160715
  17. LYRICA [Suspect]
     Active Substance: PREGABALIN
     Indication: DIABETIC NEUROPATHY
     Dosage: 50 MG, 3X/DAY
     Route: 048
  18. HYDROCORTISONE. [Concomitant]
     Active Substance: HYDROCORTISONE
     Dosage: 15 MG, 1X/DAY (EVERY BEDTIME)
     Route: 048
  19. METFORMIN HCL [Concomitant]
     Active Substance: METFORMIN HYDROCHLORIDE
     Dosage: 500 MG, DAILY
     Route: 048
     Dates: start: 20160720
  20. SIMVASTATIN. [Concomitant]
     Active Substance: SIMVASTATIN
     Dosage: 40 MG, 1X/DAY (AT BEDTIME)
     Route: 048
     Dates: start: 20160715
  21. CARVEDILOL. [Concomitant]
     Active Substance: CARVEDILOL
     Dosage: 3.125 MG, 2X/DAY
     Dates: start: 20160720
  22. HYDROCODONE/ACETAMINOPHEN [Concomitant]
     Active Substance: ACETAMINOPHEN\HYDROCODONE
     Indication: PAIN
     Dosage: 1 DF, AS NEEDED (EVERY TWELVE HOURS, [HYDROCODONE BITARTRATE: 5MG/PARACETAMOL: 325])
     Route: 048
     Dates: start: 20151204

REACTIONS (12)
  - Pain [Not Recovered/Not Resolved]
  - Weight decreased [Not Recovered/Not Resolved]
  - Pyrexia [Unknown]
  - Malaise [Recovered/Resolved]
  - Pallor [Unknown]
  - Memory impairment [Not Recovered/Not Resolved]
  - Vomiting [Recovered/Resolved]
  - Decreased appetite [Unknown]
  - Gait disturbance [Not Recovered/Not Resolved]
  - Dysstasia [Unknown]
  - Blood glucose increased [Recovered/Resolved]
  - Body height decreased [Unknown]
